FAERS Safety Report 22850411 (Version 3)
Quarter: 2024Q3

REPORT INFORMATION
  Report Type: Spontaneous
  Country: BR (occurrence: BR)
  Receive Date: 20230822
  Receipt Date: 20240903
  Transmission Date: 20241017
  Serious: No
  Sender: BAYER
  Company Number: BR-BAYER-2023A114605

PATIENT
  Age: 26 Year
  Sex: Female

DRUGS (1)
  1. MIRENA [Suspect]
     Active Substance: LEVONORGESTREL
     Indication: Contraception
     Dosage: 20?G/DAY
     Route: 015
     Dates: start: 20230804

REACTIONS (6)
  - Candida infection [Recovered/Resolved with Sequelae]
  - Genital haemorrhage [None]
  - Abdominal pain lower [None]
  - Migraine [None]
  - Acne [None]
  - Weight increased [None]

NARRATIVE: CASE EVENT DATE: 20230805
